FAERS Safety Report 6849593-5 (Version None)
Quarter: 2010Q3

REPORT INFORMATION
  Report Type: 
  Country: None (occurrence: None)
  Receive Date: 20100716
  Receipt Date: 20071002
  Transmission Date: 20110219
  Serious: No
  Sender: FDA-Public Use
  Company Number: US-PFIZER INC-2007083917

PATIENT
  Age: 45 Year
  Sex: Male
  Weight: 150 kg

DRUGS (6)
  1. CHANTIX [Suspect]
     Indication: SMOKING CESSATION THERAPY
     Route: 048
     Dates: start: 20070921
  2. LISINOPRIL [Concomitant]
     Route: 048
  3. ZOCOR [Concomitant]
     Route: 048
  4. METFORMIN HCL [Concomitant]
     Route: 048
  5. ZOLOFT [Concomitant]
     Route: 048
  6. LUMIGAN [Concomitant]
     Route: 031

REACTIONS (3)
  - BACK PAIN [None]
  - KIDNEY INFECTION [None]
  - RENAL PAIN [None]
